FAERS Safety Report 7543427-1 (Version None)
Quarter: 2011Q2

REPORT INFORMATION
  Report Type: 
  Country: None (occurrence: None)
  Receive Date: 20110524
  Receipt Date: 20110204
  Transmission Date: 20111010
  Serious: No
  Sender: FDA-Public Use
  Company Number: 023971

PATIENT
  Sex: Male

DRUGS (2)
  1. CIMZIA [Suspect]
     Indication: CROHN'S DISEASE
     Dosage: (400 MG 1X/2 WEEKS SUBCUTANEOUS) ; (400 1X/4 WEEKS SUBCUTANEOUS)
     Route: 058
     Dates: start: 20101202
  2. CIMZIA [Suspect]

REACTIONS (2)
  - HAEMOGLOBIN DECREASED [None]
  - ANAEMIA [None]
